FAERS Safety Report 20009095 (Version 2)
Quarter: 2022Q2

REPORT INFORMATION
  Report Type: Spontaneous
  Country: US (occurrence: US)
  Receive Date: 20211029
  Receipt Date: 20220524
  Transmission Date: 20220720
  Serious: Yes (Other)
  Sender: FDA-Public Use
  Company Number: US-SPECGX-T202102416

PATIENT
  Sex: Female

DRUGS (81)
  1. OXYCODONE [Suspect]
     Active Substance: OXYCODONE
     Indication: Product used for unknown indication
     Dosage: UNK
     Route: 065
  2. BUPRENORPHINE\NALOXONE [Suspect]
     Active Substance: BUPRENORPHINE\NALOXONE
     Indication: Product used for unknown indication
     Dosage: 1 DOSAGE FORM, QD
     Route: 060
  3. BUPRENORPHINE\NALOXONE [Suspect]
     Active Substance: BUPRENORPHINE\NALOXONE
     Dosage: 1 DOSAGE FORM
     Route: 060
  4. OXYCONTIN [Suspect]
     Active Substance: OXYCODONE HYDROCHLORIDE
     Indication: Product used for unknown indication
     Dosage: 10 MILLIGRAM, Q12H
     Route: 048
  5. OXYCONTIN [Suspect]
     Active Substance: OXYCODONE HYDROCHLORIDE
     Dosage: 10 MILLIGRAM, Q12H, FOR 30 DAYS
     Route: 048
  6. OXYCONTIN [Suspect]
     Active Substance: OXYCODONE HYDROCHLORIDE
     Dosage: 10 MILLIGRAM,BID
     Route: 048
  7. OXYCONTIN [Suspect]
     Active Substance: OXYCODONE HYDROCHLORIDE
     Dosage: 10 MILLIGRAM, Q8H
     Route: 048
  8. OXYCONTIN [Suspect]
     Active Substance: OXYCODONE HYDROCHLORIDE
     Dosage: 10 MILLIGRAM, Q12H, FOR 20 DAYS
     Route: 048
  9. SUBOXONE [Suspect]
     Active Substance: BUPRENORPHINE HYDROCHLORIDE\NALOXONE HYDROCHLORIDE
     Indication: Product used for unknown indication
     Dosage: UNK
     Route: 065
  10. ATORVASTATIN [Suspect]
     Active Substance: ATORVASTATIN
     Indication: Product used for unknown indication
     Dosage: 20 MILLIGRAM, QD
     Route: 048
  11. ATORVASTATIN [Suspect]
     Active Substance: ATORVASTATIN
     Dosage: 40 MILLIGRAM, QD UTD
     Route: 048
  12. BUPRENORPHINE AND NALOXONE [Suspect]
     Active Substance: BUPRENORPHINE HYDROCHLORIDE\NALOXONE HYDROCHLORIDE
     Indication: Product used for unknown indication
     Dosage: 1 DOSAGE FORM, QD (8/2 MG)
     Route: 060
  13. BUPRENORPHINE AND NALOXONE [Suspect]
     Active Substance: BUPRENORPHINE HYDROCHLORIDE\NALOXONE HYDROCHLORIDE
     Dosage: 1 DOSAGE FORM, QD (4/1 MG)
     Route: 060
  14. BUPRENORPHINE AND NALOXONE [Suspect]
     Active Substance: BUPRENORPHINE HYDROCHLORIDE\NALOXONE HYDROCHLORIDE
     Dosage: 1 DOSAGE FORM, Q12H
     Route: 060
  15. TIZANIDINE [Suspect]
     Active Substance: TIZANIDINE
     Indication: Muscle spasms
     Dosage: 4 MILLIGRAM, PRN (EVERY 8 HOURS, AS NEEDED)
     Route: 048
  16. TIZANIDINE [Suspect]
     Active Substance: TIZANIDINE
     Dosage: 8 MILLIGRAM, Q12H
     Route: 048
  17. TIZANIDINE [Suspect]
     Active Substance: TIZANIDINE
     Dosage: 4 MILLIGRAM, BID
     Route: 048
  18. TIZANIDINE [Suspect]
     Active Substance: TIZANIDINE
     Dosage: 8 MILLIGRAM, Q8H
     Route: 048
  19. DULOXETINE [Suspect]
     Active Substance: DULOXETINE
     Indication: Product used for unknown indication
     Dosage: 30 MILLIGRAM, QD
     Route: 048
  20. CHANTIX [Suspect]
     Active Substance: VARENICLINE TARTRATE
     Indication: Product used for unknown indication
     Dosage: 1 MILLIGRAM, BID (AS DIRECTED)
     Route: 048
  21. BUDESONIDE [Suspect]
     Active Substance: BUDESONIDE
     Indication: Product used for unknown indication
     Dosage: 3 MILLIGRAM, TID
     Route: 048
  22. BUDESONIDE [Suspect]
     Active Substance: BUDESONIDE
     Dosage: 3 MILLIGRAM, QD (UPTO 8 WEEKS)
     Route: 048
  23. BUDESONIDE [Suspect]
     Active Substance: BUDESONIDE
     Dosage: 9 MILLIGRAM, QD (UPTO 8 WEEKS)
     Route: 048
  24. BUPROPION HYDROCHLORIDE XL [Suspect]
     Active Substance: BUPROPION HYDROCHLORIDE
     Indication: Product used for unknown indication
     Dosage: 300 MILLIGRAM, QD, (EVERY MORNING)
     Route: 048
  25. BUPROPION HYDROCHLORIDE XL [Suspect]
     Active Substance: BUPROPION HYDROCHLORIDE
     Dosage: 150 MILLIGRAM, QD, (EVERY MORNING)
     Route: 048
  26. LEVOFLOXACIN [Suspect]
     Active Substance: LEVOFLOXACIN
     Indication: Product used for unknown indication
     Dosage: 500 MILLIGRAM, QD (FOR 7 DAYS)
     Route: 048
  27. LEVOFLOXACIN [Suspect]
     Active Substance: LEVOFLOXACIN
     Dosage: 750MILLIGRAM, QD (EVERY EVENING, FOR 7 DAYS)
     Route: 048
  28. PREDNISONE [Suspect]
     Active Substance: PREDNISONE
     Indication: Product used for unknown indication
     Dosage: 5 MILLIGRAM (AS DIRECTED)
     Route: 065
  29. BACLOFEN [Suspect]
     Active Substance: BACLOFEN
     Indication: Product used for unknown indication
     Dosage: 10 MILLIGRAM, PRN (AT BEDTIME, AS NEEDED)
     Route: 048
  30. ALBUTEROL SULFATE [Suspect]
     Active Substance: ALBUTEROL SULFATE
     Indication: Wheezing
     Dosage: 2 DOSAGE FORM, PRN 8.5 MG, 2 PUFFS, EVERY 6 HOURS AS NEEDED
  31. SPIRONOLACTONE [Suspect]
     Active Substance: SPIRONOLACTONE
     Indication: Product used for unknown indication
     Dosage: 50 MILLIGRAM, QD
     Route: 048
  32. MINOCYCLINE [Suspect]
     Active Substance: MINOCYCLINE HYDROCHLORIDE
     Indication: Product used for unknown indication
     Dosage: 100 MILLIGRAM, BID FOR 10 DAYS
     Route: 048
  33. VALACYCLOVIR HYDROCHLORIDE [Suspect]
     Active Substance: VALACYCLOVIR HYDROCHLORIDE
     Indication: Product used for unknown indication
     Dosage: 1 GRAM (AT ONSET OF OUTBREAKS)
     Route: 048
  34. VALACYCLOVIR HYDROCHLORIDE [Suspect]
     Active Substance: VALACYCLOVIR HYDROCHLORIDE
     Dosage: 1 GRAM, BID
     Route: 048
  35. PROGESTERONE [Suspect]
     Active Substance: PROGESTERONE
     Indication: Product used for unknown indication
     Dosage: 100 MILLIGRAM, QD
     Route: 048
  36. AMOXICILLIN\CLAVULANATE POTASSIUM [Suspect]
     Active Substance: AMOXICILLIN\CLAVULANATE POTASSIUM
     Indication: Product used for unknown indication
     Dosage: 875 MILLIGRAM, BID (FOR 10 DAYS)
     Route: 048
  37. GABAPENTIN [Suspect]
     Active Substance: GABAPENTIN
     Indication: Product used for unknown indication
     Dosage: 300 MILLIGRAM, Q8H
     Route: 048
  38. GABAPENTIN [Suspect]
     Active Substance: GABAPENTIN
     Dosage: 300 MILLIGRAM, QID
     Route: 048
  39. GABAPENTIN [Suspect]
     Active Substance: GABAPENTIN
     Dosage: 100 MILLIGRAM, TID
     Route: 048
  40. ACYCLOVIR [Suspect]
     Active Substance: ACYCLOVIR
     Indication: Product used for unknown indication
     Dosage: 400 MILLIGRAM, Q6H (FOR 14 DAYS)
     Route: 048
  41. ACYCLOVIR [Suspect]
     Active Substance: ACYCLOVIR
     Dosage: 200MILLIGRAM, FID, FOR 10 DAYS
     Route: 048
  42. ACYCLOVIR [Suspect]
     Active Substance: ACYCLOVIR
     Dosage: 200MILLIGRAM, FID, FOR 5 DAYS
     Route: 048
  43. ACYCLOVIR [Suspect]
     Active Substance: ACYCLOVIR
     Dosage: 200MILLIGRAM, FIVE TIMES DAILY , FOR 5 DAYS
     Route: 048
  44. IBUPROFEN [Suspect]
     Active Substance: IBUPROFEN
     Indication: Product used for unknown indication
     Dosage: 800 MILLIGRAM, TID
     Route: 048
  45. ROPINIROLE [Suspect]
     Active Substance: ROPINIROLE
     Indication: Product used for unknown indication
     Dosage: 2 MILLIGRAM
     Route: 048
  46. ROPINIROLE [Suspect]
     Active Substance: ROPINIROLE
     Dosage: 2 MILLIGRAM, QHS (1 TO 3 HOURS BEFORE BED)
     Route: 048
  47. OXYCODONE AND ACETAMINOPHEN [Suspect]
     Active Substance: ACETAMINOPHEN\OXYCODONE HYDROCHLORIDE
     Indication: Pain
     Dosage: 1 DOSAGE FORM, PRN (Q4H TO Q6H PRN)
     Route: 048
  48. OXYCODONE AND ACETAMINOPHEN [Suspect]
     Active Substance: ACETAMINOPHEN\OXYCODONE HYDROCHLORIDE
     Dosage: 1 DOSAGE FORM, Q4H TO Q6H FOR 28 HOURS
     Route: 048
  49. OXYCODONE AND ACETAMINOPHEN [Suspect]
     Active Substance: ACETAMINOPHEN\OXYCODONE HYDROCHLORIDE
     Dosage: 1 DOSAGE FORM, PRN (Q6 H FOR 30 DAYS)
     Route: 048
  50. OXYCODONE AND ACETAMINOPHEN [Suspect]
     Active Substance: ACETAMINOPHEN\OXYCODONE HYDROCHLORIDE
     Dosage: 1 DOSAGE FORM,  Q6 H
     Route: 048
  51. OXYCODONE AND ACETAMINOPHEN [Suspect]
     Active Substance: ACETAMINOPHEN\OXYCODONE HYDROCHLORIDE
     Dosage: 1 DOSAGE FORM, QID FOR 30 DAYS
     Route: 048
  52. OXYCODONE AND ACETAMINOPHEN [Suspect]
     Active Substance: ACETAMINOPHEN\OXYCODONE HYDROCHLORIDE
     Dosage: 1 DOSAGE FORM, QID FOR 15DAYS
     Route: 048
  53. XTAMPZA ER [Suspect]
     Active Substance: OXYCODONE
     Indication: Product used for unknown indication
     Dosage: 9 MILLIGRAM, QD (WITH FOOD)
     Route: 048
  54. XTAMPZA ER [Suspect]
     Active Substance: OXYCODONE
     Dosage: 9 MILLIGRAM, QD FOR 28 DAYS
     Route: 048
  55. XTAMPZA ER [Suspect]
     Active Substance: OXYCODONE
     Dosage: 9 MILLIGRAM, Q12H
     Route: 048
  56. XTAMPZA ER [Suspect]
     Active Substance: OXYCODONE
     Dosage: 9 MILLIGRAM, Q6H, PRN
     Route: 048
  57. METHYLPREDNISOLONE [Suspect]
     Active Substance: METHYLPREDNISOLONE
     Indication: Product used for unknown indication
     Dosage: 4 MILLIGRAM
     Route: 065
  58. OMEPRAZOLE [Suspect]
     Active Substance: OMEPRAZOLE
     Indication: Product used for unknown indication
     Dosage: 20 MILLIGRAM, QD (30 MINS BEFORE BREAKFAST)
     Route: 048
  59. GAVILYTE G [Suspect]
     Active Substance: POLYETHYLENE GLYCOL 3350\POTASSIUM CHLORIDE\SODIUM BICARBONATE\SODIUM CHLORIDE\SODIUM SULFATE
     Indication: Product used for unknown indication
     Dosage: UNK (4000 ML, ONCE, 1/2 AT 6PM AND 1/2 AT 2 AM MIDNIGHT)
     Route: 048
  60. OXYCODONE [Suspect]
     Active Substance: OXYCODONE
     Indication: Product used for unknown indication
     Dosage: 10 MILLIGRAM, Q8H
     Route: 048
  61. LYRICA [Suspect]
     Active Substance: PREGABALIN
     Indication: Product used for unknown indication
     Dosage: 75 MILLIGRAM, BID
     Route: 048
  62. METRONIDAZOLE [Suspect]
     Active Substance: METRONIDAZOLE
     Indication: Product used for unknown indication
     Dosage: 500 MILLIGRAM, TID
     Route: 048
  63. ESTROGENS\METHYLTESTOSTERONE [Suspect]
     Active Substance: ESTROGENS\METHYLTESTOSTERONE
     Indication: Product used for unknown indication
     Dosage: UNK (0.625/1.25MG, 1 TABLET, QD)
     Route: 048
  64. ZOSTAVAX [Suspect]
     Active Substance: VARICELLA-ZOSTER VIRUS STRAIN OKA/MERCK LIVE ANTIGEN
     Indication: Product used for unknown indication
     Dosage: 0.65 MILLILITER (SINGLE)
     Route: 058
  65. BUSPIRONE [Suspect]
     Active Substance: BUSPIRONE HYDROCHLORIDE
     Indication: Product used for unknown indication
     Dosage: 10 MILLIGRAM, QD
     Route: 048
  66. DEVICE [Suspect]
     Active Substance: DEVICE
     Indication: Product used for unknown indication
     Dosage: 3^X3^ GAUZE PADS
     Route: 065
  67. CEFDINIR [Suspect]
     Active Substance: CEFDINIR
     Indication: Product used for unknown indication
     Dosage: 300 MILLIGRAM, BID
     Route: 048
  68. TAMIFLU [Suspect]
     Active Substance: OSELTAMIVIR PHOSPHATE
     Indication: Product used for unknown indication
     Dosage: 75 MILLIGRAM, BID (FOR 5 DAYS)
     Route: 048
  69. TOPIRAMATE [Suspect]
     Active Substance: TOPIRAMATE
     Indication: Product used for unknown indication
     Dosage: 100 MILLIGRAM, BID
     Route: 048
  70. TOPIRAMATE [Suspect]
     Active Substance: TOPIRAMATE
     Dosage: 100 MILLIGRAM, BID (FOR 30 DAYS)
     Route: 048
  71. VOLTAREN [Suspect]
     Active Substance: DICLOFENAC SODIUM
     Indication: Product used for unknown indication
     Dosage: UNK (1% GEL, 100 GM SPARINGLY ONCE)
     Route: 065
  72. NICOTINE [Suspect]
     Active Substance: NICOTINE
     Indication: Product used for unknown indication
     Dosage: 21MG/24H (APPLY ONE PATCH QD)
     Route: 062
  73. AMOXICILLIN [Suspect]
     Active Substance: AMOXICILLIN
     Indication: Product used for unknown indication
     Dosage: 875 MILLIGRAM, Q12H
     Route: 048
  74. SUPREP BOWEL PREP [Suspect]
     Active Substance: MAGNESIUM SULFATE\POTASSIUM SULFATE\SODIUM SULFATE
     Indication: Product used for unknown indication
     Dosage: UNK
     Route: 065
  75. DICLOFENAC SODIUM [Suspect]
     Active Substance: DICLOFENAC SODIUM
     Indication: Product used for unknown indication
     Dosage: 75 MILLIGRAM, BID WITH FOOD FOR 10 DAYS
     Route: 048
  76. BUPRENORPHINE AND NALOXONE [Suspect]
     Active Substance: BUPRENORPHINE HYDROCHLORIDE\NALOXONE HYDROCHLORIDE
     Indication: Product used for unknown indication
     Dosage: 1 DOSAGE FORM, QD (8/2 MG)
     Route: 060
  77. ACYCLOVIR [Suspect]
     Active Substance: ACYCLOVIR
     Indication: Product used for unknown indication
     Dosage: 200 MILLIGRAM (TAKE 1 CAPSULE FIVE TIMES DAILY FOR 10 DAYS)
     Route: 048
  78. ACYCLOVIR [Suspect]
     Active Substance: ACYCLOVIR
     Dosage: 200 MILLIGRAM (TAKE 1 CAPSULE FIVE TIMES DAILY FOR 5 DAYS)
     Route: 048
  79. BUPROPION [Suspect]
     Active Substance: BUPROPION
     Indication: Product used for unknown indication
     Dosage: 150 MILLIGRAM, QD (FOR 1 WEEK)
     Route: 048
  80. BUPROPION [Suspect]
     Active Substance: BUPROPION
     Dosage: 150 MILLIGRAM, BID
     Route: 048
  81. PRAMIPEXOLE [Suspect]
     Active Substance: PRAMIPEXOLE
     Dosage: 0.5 MILLIGRAM, QD
     Route: 048

REACTIONS (6)
  - Injury [Unknown]
  - Drug dependence [Unknown]
  - Illness [Unknown]
  - Muscle spasms [Unknown]
  - Withdrawal syndrome [Unknown]
  - Homeless [Unknown]
